FAERS Safety Report 6764729-2 (Version None)
Quarter: 2010Q2

REPORT INFORMATION
  Report Type: 
  Country: None (occurrence: None)
  Receive Date: 20100610
  Receipt Date: 20100528
  Transmission Date: 20101027
  Serious: Yes (Hospitalization)
  Sender: FDA-Public Use
  Company Number: DE-MYLANLABS-2009S1004768

PATIENT
  Age: 95 Year
  Sex: Male
  Weight: 60 kg

DRUGS (7)
  1. CARVEDILOL [Suspect]
     Indication: HYPERTENSION
     Route: 048
     Dates: start: 20000101, end: 20081201
  2. DIGITOXIN [Suspect]
     Indication: CARDIAC FAILURE CHRONIC
     Route: 048
     Dates: start: 20000101, end: 20081201
  3. GLIBENCLAMIDE [Concomitant]
     Indication: TYPE 2 DIABETES MELLITUS
     Dosage: 3.5-0-1.75
     Route: 048
     Dates: start: 20000101
  4. RAMIPRIL [Concomitant]
     Indication: HYPERTENSION
     Dosage: WEITER BIS 03.12., DANN NUR NOCH 1.25 MG GEGEBEN
     Route: 048
     Dates: start: 20000101, end: 20081201
  5. TORSEMIDE [Concomitant]
     Indication: HYPERTENSION
     Route: 048
     Dates: start: 20000101, end: 20081201
  6. ASPIRIN [Concomitant]
     Indication: PROPHYLAXIS
     Route: 048
     Dates: start: 20000101, end: 20081208
  7. FUROSEMIDE [Concomitant]
     Indication: HYPERTENSION
     Route: 048
     Dates: start: 20000101, end: 20081201

REACTIONS (9)
  - ANAEMIA [None]
  - BRADYARRHYTHMIA [None]
  - CARDIOPULMONARY FAILURE [None]
  - DIVERTICULUM [None]
  - DUODENAL ULCER [None]
  - LACERATION [None]
  - LARGE INTESTINAL HAEMORRHAGE [None]
  - MITRAL VALVE INCOMPETENCE [None]
  - PULMONARY HYPERTENSION [None]
